FAERS Safety Report 22343898 (Version 1)
Quarter: 2023Q2

REPORT INFORMATION
  Report Type: Spontaneous
  Country: US (occurrence: None)
  Receive Date: 20230518
  Receipt Date: 20230518
  Transmission Date: 20230722
  Serious: No
  Sender: FDA-Public Use
  Company Number: None

PATIENT
  Age: 9 Year
  Sex: Male
  Weight: 32.85 kg

DRUGS (5)
  1. DEXMETHYLPHENIDATE [Suspect]
     Active Substance: DEXMETHYLPHENIDATE
     Indication: Attention deficit hyperactivity disorder
     Dosage: FREQUENCY : DAILY;?
     Route: 048
  2. METHYLPHENIDATE [Concomitant]
  3. CLONIDINE [Concomitant]
     Active Substance: CLONIDINE
  4. Culturelle prebiotic [Concomitant]
  5. LilCritters gummy vites [Concomitant]

REACTIONS (4)
  - Distractibility [None]
  - Product substitution issue [None]
  - Impulsive behaviour [None]
  - Poor quality product administered [None]

NARRATIVE: CASE EVENT DATE: 20230508
